FAERS Safety Report 15849303 (Version 1)
Quarter: 2019Q1

REPORT INFORMATION
  Report Type: Report from Study
  Country: US (occurrence: US)
  Receive Date: 20190121
  Receipt Date: 20190121
  Transmission Date: 20190417
  Serious: Yes (Other)
  Sender: FDA-Public Use
  Company Number: US-SA-2019SA013652

PATIENT
  Age: 19 Year
  Sex: Female

DRUGS (2)
  1. DUPILUMAB [Suspect]
     Active Substance: DUPILUMAB
     Dosage: 1 DF, 1X
     Route: 058
     Dates: start: 20181224, end: 20181224
  2. DUPILUMAB [Suspect]
     Active Substance: DUPILUMAB
     Dosage: 1 DF, QOW
     Route: 058
     Dates: start: 20190107

REACTIONS (4)
  - Underdose [Not Recovered/Not Resolved]
  - Loss of consciousness [Recovered/Resolved]
  - Pallor [Recovered/Resolved]
  - Cyanosis [Recovered/Resolved]

NARRATIVE: CASE EVENT DATE: 20181224
